FAERS Safety Report 11108960 (Version 1)
Quarter: 2015Q2

REPORT INFORMATION
  Report Type: Spontaneous
  Country: US (occurrence: None)
  Receive Date: 20150511
  Receipt Date: 20150511
  Transmission Date: 20150821
  Serious: No
  Sender: FDA-Public Use
  Company Number: None

PATIENT
  Age: 63 Year
  Sex: Female
  Weight: 88.45 kg

DRUGS (6)
  1. DULOXETINE HCL 30 MG LUPIN [Suspect]
     Active Substance: DULOXETINE HYDROCHLORIDE
     Indication: FIBROMYALGIA
     Dosage: TAKEN BY MOUTH
     Dates: start: 20140107, end: 20150423
  2. VITAMIN D [Concomitant]
     Active Substance: CHOLECALCIFEROL
  3. CORTISONE [Concomitant]
     Active Substance: CORTISONE\HYDROCORTISONE
  4. CYMBALTA [Concomitant]
     Active Substance: DULOXETINE HYDROCHLORIDE
  5. MAGNESIUM [Concomitant]
     Active Substance: MAGNESIUM
  6. TYLENOL [Concomitant]
     Active Substance: ACETAMINOPHEN

REACTIONS (9)
  - Somnolence [None]
  - Tinnitus [None]
  - Pruritus [None]
  - Urticaria [None]
  - Panic attack [None]
  - Headache [None]
  - Musculoskeletal pain [None]
  - Chest pain [None]
  - Dyspepsia [None]

NARRATIVE: CASE EVENT DATE: 20140115
